FAERS Safety Report 5003529-0 (Version None)
Quarter: 2006Q1

REPORT INFORMATION
  Report Type: 
  Country: None (occurrence: None)
  Receive Date: 20060317
  Receipt Date: 20060217
  Transmission Date: 20060701
  Serious: Yes (Other)
  Sender: FDA-Public Use
  Company Number: US-JNJFOC-20060204614

PATIENT
  Age: 42 Year
  Sex: Female
  Weight: 54.4316 kg

DRUGS (1)
  1. ORTHO EVRA [Suspect]
     Indication: CONTRACEPTION
     Dosage: 1 DOSE(S), 3 IN 4 WEEK, TRANSDERMAL
     Route: 062
     Dates: start: 20050201, end: 20051001

REACTIONS (3)
  - BACK PAIN [None]
  - BREAST CANCER STAGE IV [None]
  - UTERINE LEIOMYOMA [None]
